FAERS Safety Report 6654875 (Version 4)
Quarter: 2014Q1

REPORT INFORMATION
  Report Type: Report from Study
  Country: KR (occurrence: KR)
  Receive Date: 20080602
  Receipt Date: 20140219
  Transmission Date: 20141002
  Serious: Yes (Hospitalization, Other)
  Sender: FDA-Public Use
  Company Number: KR-JNJFOC-20080504885

PATIENT
  Age: 20 Year
  Sex: Female
  Weight: 47 kg

DRUGS (9)
  1. INFLIXIMAB [Suspect]
     Indication: ANAL FISTULA
     Route: 042
     Dates: start: 20071224
  2. INFLIXIMAB [Suspect]
     Indication: ANAL FISTULA
     Route: 042
     Dates: start: 20071107
  3. INFLIXIMAB [Suspect]
     Indication: ANAL FISTULA
     Route: 042
     Dates: start: 20080224
  4. INFLIXIMAB [Suspect]
     Indication: CROHN^S DISEASE
     Route: 042
     Dates: start: 20071107
  5. INFLIXIMAB [Suspect]
     Indication: CROHN^S DISEASE
     Route: 042
     Dates: start: 20071224
  6. INFLIXIMAB [Suspect]
     Indication: CROHN^S DISEASE
     Route: 042
     Dates: start: 20080224
  7. AZATHIOPRINE [Concomitant]
     Indication: CROHN^S DISEASE
     Route: 048
     Dates: start: 20030106
  8. PENTASA [Concomitant]
     Indication: CROHN^S DISEASE
     Route: 048
     Dates: start: 20021203
  9. LACTOBACILLUS [Concomitant]
     Indication: CROHN^S DISEASE
     Route: 048
     Dates: start: 20060926

REACTIONS (1)
  - Pulmonary tuberculosis [Recovered/Resolved]
